FAERS Safety Report 7349977-5 (Version None)
Quarter: 2011Q1

REPORT INFORMATION
  Report Type: 
  Country: None (occurrence: None)
  Receive Date: 20110314
  Receipt Date: 20110303
  Transmission Date: 20110831
  Serious: Yes (Hospitalization)
  Sender: FDA-Public Use
  Company Number: US-ROCHE-763508

PATIENT
  Sex: Female
  Weight: 60.3 kg

DRUGS (4)
  1. TELAPREVIR [Suspect]
     Dosage: DOSE REPORTED AS 2 TAB. AS PER PROTOCOL DOSE 750 MG 2 TAB EVERY 8 HOURS.STOPPED AT WEEK 2 VISIT.
     Route: 048
     Dates: start: 20110124, end: 20110222
  2. PROCRIT [Concomitant]
     Dosage: GIVEN AT NOON.
     Dates: start: 20110302
  3. RIBAVIRIN [Suspect]
     Dosage: AS PER PROTOCOL : DOSE :DEPENDING ON THE PATIENT'S TREATMENT RESPONSE AT WEEK 4 AND FORM:TABLET.
     Route: 048
     Dates: start: 20110124, end: 20110302
  4. PEGINTERFERON ALFA-2A [Suspect]
     Dosage: AS PER THE PROTOCOL DOSE FORM:INJECTION , ROUTE:SUBCUTANEOUS
     Route: 058
     Dates: start: 20110124, end: 20110228

REACTIONS (1)
  - CONVULSION [None]
